FAERS Safety Report 12864752 (Version 2)
Quarter: 2017Q2

REPORT INFORMATION
  Report Type: Report from Study
  Country: CA (occurrence: CA)
  Receive Date: 20161020
  Receipt Date: 20170403
  Transmission Date: 20170830
  Serious: Yes (Other)
  Sender: FDA-Public Use
  Company Number: PHHY2016CA142820

PATIENT
  Age: 46 Year
  Sex: Female

DRUGS (6)
  1. CHAMPIX [Concomitant]
     Active Substance: VARENICLINE TARTRATE
     Indication: SMOKING CESSATION THERAPY
     Route: 065
  2. VENTOLIN [Concomitant]
     Active Substance: ALBUTEROL SULFATE
     Indication: ASTHMA
     Dosage: 4 DF, UNK
     Route: 055
     Dates: start: 1997
  3. SPIRIVA [Concomitant]
     Active Substance: TIOTROPIUM BROMIDE MONOHYDRATE
     Indication: ASTHMA
     Dosage: 1 DF, QD
     Route: 055
     Dates: start: 2010
  4. ALVESCO [Concomitant]
     Active Substance: CICLESONIDE
     Indication: ASTHMA
     Dosage: 2 DF, QD
     Route: 055
     Dates: start: 2014
  5. ONBREZ BREEZHALER [Suspect]
     Active Substance: INDACATEROL
     Indication: ASTHMA
     Dosage: 1 DF, QD
     Route: 055
     Dates: start: 2014
  6. MONTELUKAST SODIUM. [Suspect]
     Active Substance: MONTELUKAST SODIUM
     Indication: ASTHMA
     Dosage: 10 MG, QD
     Route: 048
     Dates: start: 2012

REACTIONS (10)
  - Dyspnoea [Unknown]
  - Influenza [Unknown]
  - Oropharyngeal pain [Unknown]
  - Pulmonary pain [Unknown]
  - Bronchospasm [Unknown]
  - Hypersensitivity [Unknown]
  - Respiratory arrest [Unknown]
  - Gait disturbance [Unknown]
  - Nasal congestion [Unknown]
  - Product use in unapproved indication [Unknown]

NARRATIVE: CASE EVENT DATE: 20161013
